FAERS Safety Report 23643056 (Version 1)
Quarter: 2024Q1

REPORT INFORMATION
  Report Type: Spontaneous
  Country: US (occurrence: None)
  Receive Date: 20240315
  Receipt Date: 20240315
  Transmission Date: 20240409
  Serious: Yes (Hospitalization)
  Sender: FDA-Public Use
  Company Number: None

PATIENT
  Sex: Male
  Weight: 93 kg

DRUGS (1)
  1. YESCARTA [Suspect]
     Active Substance: AXICABTAGENE CILOLEUCEL
     Indication: Diffuse large B-cell lymphoma
     Dates: start: 20230414, end: 20230414

REACTIONS (19)
  - Neurotoxicity [None]
  - Abdominal pain [None]
  - Mental status changes [None]
  - Cancer pain [None]
  - Constipation [None]
  - Pyrexia [None]
  - Dysphagia [None]
  - Diplopia [None]
  - Dysarthria [None]
  - Hypoxia [None]
  - Pulmonary embolism [None]
  - Anxiety [None]
  - Claustrophobia [None]
  - Parotid gland enlargement [None]
  - Spinal stenosis [None]
  - Spinal compression fracture [None]
  - Spinal cord compression [None]
  - Sinus tachycardia [None]
  - Immune effector cell-associated neurotoxicity syndrome [None]
